FAERS Safety Report 4848152-3 (Version None)
Quarter: 2005Q4

REPORT INFORMATION
  Report Type: 
  Country: None (occurrence: None)
  Receive Date: 20051208
  Receipt Date: 20051129
  Transmission Date: 20060501
  Serious: Yes (Life-Threatening, Hospitalization, Other)
  Sender: FDA-Public Use
  Company Number: JP-JNJFOC-20050903663

PATIENT
  Sex: Female
  Weight: 52 kg

DRUGS (22)
  1. REMICADE [Suspect]
     Route: 042
  2. REMICADE [Suspect]
     Route: 042
  3. REMICADE [Suspect]
     Route: 042
  4. REMICADE [Suspect]
     Route: 042
  5. REMICADE [Suspect]
     Indication: RHEUMATOID ARTHRITIS
     Route: 042
  6. RHEUMATREX [Suspect]
     Dosage: IMPROVEMENT BY DISCONTINUATION
     Route: 048
  7. RHEUMATREX [Suspect]
     Indication: RHEUMATOID ARTHRITIS
     Route: 048
  8. PREDONINE [Suspect]
     Indication: RHEUMATOID ARTHRITIS
     Route: 048
  9. PREDONINE [Concomitant]
     Route: 048
  10. PREDONINE [Concomitant]
     Route: 048
  11. PREDONINE [Concomitant]
     Route: 048
  12. VOLTAREN [Concomitant]
     Indication: RHEUMATOID ARTHRITIS
     Route: 054
  13. ADRENAL HORMONE PREPARATIONS [Concomitant]
     Indication: RHEUMATOID ARTHRITIS
     Route: 065
  14. ISCOTIN [Concomitant]
     Indication: ANTIBIOTIC PROPHYLAXIS
     Route: 048
  15. ACTONEL [Concomitant]
     Indication: OSTEOPOROSIS
     Route: 048
  16. BLOPRESS [Concomitant]
     Indication: BLOOD PRESSURE MANAGEMENT
     Route: 048
  17. DORAL [Concomitant]
     Route: 048
  18. DORAL [Concomitant]
     Route: 048
  19. FERROMIA [Concomitant]
     Route: 048
  20. TAKEPRON [Concomitant]
     Route: 048
  21. VITANEURIN [Concomitant]
     Dosage: POSTPRANDIAL
     Route: 048
  22. PYDOXAL [Concomitant]
     Route: 048

REACTIONS (2)
  - CYTOMEGALOVIRUS INFECTION [None]
  - LYMPHOMA [None]
